FAERS Safety Report 6727989-X (Version None)
Quarter: 2010Q2

REPORT INFORMATION
  Report Type: 
  Country: None (occurrence: None)
  Receive Date: 20100517
  Receipt Date: 20100512
  Transmission Date: 20101027
  Serious: Yes (Hospitalization, Disabling)
  Sender: FDA-Public Use
  Company Number: DK-BRACCO-000018

PATIENT
  Sex: Male

DRUGS (16)
  1. MAGNYL [Concomitant]
  2. PHOS-EX [Concomitant]
  3. VITAMIN TAB [Concomitant]
  4. ELTROXIN [Concomitant]
  5. LOSEC I.V. [Concomitant]
  6. VENOFER [Concomitant]
     Route: 042
  7. INSULATARD [Concomitant]
  8. SELO-ZOK [Concomitant]
  9. ACTRAPID [Concomitant]
  10. CARDIL [Concomitant]
  11. CONTRAST MEDIA [Suspect]
     Indication: RENAL TRANSPLANT
     Dates: start: 20010601, end: 20010601
  12. CONTRAST MEDIA [Suspect]
     Indication: VENOUS THROMBOSIS
     Dates: start: 20041014, end: 20041014
  13. CONTRAST MEDIA [Suspect]
     Indication: VENOGRAM
     Dates: start: 20010601, end: 20010601
  14. CONTRAST MEDIA [Suspect]
     Indication: NUCLEAR MAGNETIC RESONANCE IMAGING
     Dates: start: 20010601, end: 20010601
  15. OMNISCAN [Suspect]
     Indication: NUCLEAR MAGNETIC RESONANCE IMAGING
     Route: 042
     Dates: start: 20020429, end: 20020429
  16. PREDNISOLONE [Concomitant]
     Dates: start: 20020601

REACTIONS (1)
  - NEPHROGENIC SYSTEMIC FIBROSIS [None]
